FAERS Safety Report 18717507 (Version 2)
Quarter: 2021Q1

REPORT INFORMATION
  Report Type: Spontaneous
  Country: US (occurrence: US)
  Receive Date: 20210108
  Receipt Date: 20210111
  Transmission Date: 20210419
  Serious: Yes (Death, Other)
  Sender: FDA-Public Use
  Company Number: US-PFIZER INC-2021006312

PATIENT
  Age: 86 Year
  Sex: Female
  Weight: 74.84 kg

DRUGS (2)
  1. IBRANCE [Suspect]
     Active Substance: PALBOCICLIB
     Indication: BREAST CANCER METASTATIC
     Dosage: UNK
     Dates: start: 20200225
  2. IBRANCE [Suspect]
     Active Substance: PALBOCICLIB
     Indication: BREAST CANCER METASTATIC
     Dosage: 75 MG, CYCLIC [DAILY FOR 21 DAYS ON AND 7 DAYS OFF]
     Dates: end: 20200902

REACTIONS (5)
  - Pulmonary oedema [Unknown]
  - Body height decreased [Unknown]
  - Pneumonia [Unknown]
  - Fatigue [Unknown]
  - Neoplasm progression [Fatal]

NARRATIVE: CASE EVENT DATE: 202006
